FAERS Safety Report 5280601-1 (Version None)
Quarter: 2007Q1

REPORT INFORMATION
  Report Type: 
  Country: None (occurrence: None)
  Receive Date: 20061215
  Receipt Date: 20060401
  Transmission Date: 20070707
  Serious: Yes (Hospitalization)
  Sender: FDA-Public Use
  Company Number: HQWYE624804APR06

PATIENT

DRUGS (1)
  1. EFFEXOR XR [Suspect]

REACTIONS (1)
  - TRANSAMINASES INCREASED [None]
